FAERS Safety Report 6148682-0 (Version None)
Quarter: 2009Q2

REPORT INFORMATION
  Report Type: 
  Country: None (occurrence: None)
  Receive Date: 20090406
  Receipt Date: 20090406
  Transmission Date: 20091009
  Serious: Yes (Life-Threatening)
  Sender: FDA-Public Use
  Company Number: None

PATIENT
  Age: 55 Year
  Sex: Male
  Weight: 89.3586 kg

DRUGS (1)
  1. KEPPRA [Suspect]
     Indication: CONVULSION
     Dosage: 500 MG TWICE DAILY PO
     Route: 048
     Dates: start: 20090401, end: 20090402

REACTIONS (3)
  - ANXIETY [None]
  - CONFUSIONAL STATE [None]
  - SUICIDAL IDEATION [None]
